FAERS Safety Report 7449667-4 (Version None)
Quarter: 2011Q2

REPORT INFORMATION
  Report Type: 
  Country: None (occurrence: None)
  Receive Date: 20110419
  Receipt Date: 20110404
  Transmission Date: 20111010
  Serious: Yes (Death)
  Sender: FDA-Public Use
  Company Number: US-2011-10184

PATIENT
  Age: 66 Year
  Sex: Female

DRUGS (6)
  1. BUSULFEX [Suspect]
     Indication: STEM CELL TRANSPLANT
     Dosage: 130 MG/M2, DAILY DOSE, INTRAVENOUS
     Route: 042
  2. FLUDARABINE (FLUDARABINE PHOSPHATE) [Concomitant]
  3. FILGRASTIM (FILGRASTIM) [Concomitant]
  4. TACROLIMUS [Concomitant]
  5. PHENYTOIN [Concomitant]
  6. METHOTREXATE [Concomitant]

REACTIONS (1)
  - CEREBRAL HAEMORRHAGE [None]
